FAERS Safety Report 4977845-2 (Version None)
Quarter: 2006Q2

REPORT INFORMATION
  Report Type: 
  Country: None (occurrence: None)
  Receive Date: 20060420
  Receipt Date: 20060418
  Transmission Date: 20061013
  Serious: Yes (Other)
  Sender: FDA-Public Use
  Company Number: US-GLAXOSMITHKLINE-A0602159A

PATIENT
  Age: 79 Year
  Sex: Female

DRUGS (6)
  1. ADVAIR DISKUS 100/50 [Suspect]
     Indication: CHRONIC OBSTRUCTIVE PULMONARY DISEASE
     Dosage: 1PUFF TWICE PER DAY
     Route: 055
  2. XOLAIR [Concomitant]
  3. LOTREL [Concomitant]
  4. EYE DROP [Concomitant]
  5. UNSPECIFIED MEDICATION [Concomitant]
  6. PREVACID [Concomitant]

REACTIONS (2)
  - COUGH [None]
  - MACULAR DEGENERATION [None]
